FAERS Safety Report 9462904 (Version 1)
Quarter: 2013Q3

REPORT INFORMATION
  Report Type: Spontaneous
  Country: LB (occurrence: None)
  Receive Date: 20130814
  Receipt Date: 20130814
  Transmission Date: 20140515
  Serious: Yes (Hospitalization)
  Sender: FDA-Public Use
  Company Number: 222754

PATIENT
  Age: 79 Year
  Sex: Female
  Weight: 62 kg

DRUGS (4)
  1. WARFARIN [Suspect]
     Indication: DEEP VEIN THROMBOSIS
     Dosage: 8 MG (8 MG, 1 IN 1 D), ORAL
     Route: 048
     Dates: start: 20120712, end: 20130723
  2. WARFARIN [Suspect]
     Indication: PULMONARY EMBOLISM
     Dosage: 8 MG (8 MG, 1 IN 1 D), ORAL
     Route: 048
     Dates: start: 20120712, end: 20130723
  3. INNOHEP [Suspect]
     Indication: DEEP VEIN THROMBOSIS
     Dosage: 11000 IU (11000 IU, 1 IN 1 D, SUBCUTANEOUS
     Route: 058
     Dates: start: 20130712, end: 20130723
  4. INNOHEP [Suspect]
     Indication: PULMONARY EMBOLISM
     Dosage: 11000 IU (11000 IU, 1 IN 1 D, SUBCUTANEOUS
     Route: 058
     Dates: start: 20130712, end: 20130723

REACTIONS (3)
  - Haematuria [None]
  - Febrile neutropenia [None]
  - Hypersensitivity [None]
